FAERS Safety Report 24629298 (Version 1)
Quarter: 2024Q4

REPORT INFORMATION
  Report Type: Report from Study
  Country: US (occurrence: US)
  Receive Date: 20241118
  Receipt Date: 20241118
  Transmission Date: 20250115
  Serious: Yes (Death)
  Sender: ABBVIE
  Company Number: US-ABBVIE-6005019

PATIENT
  Age: 79 Year
  Sex: Male

DRUGS (4)
  1. VENETOCLAX [Suspect]
     Active Substance: VENETOCLAX
     Indication: Acute myeloid leukaemia
     Dosage: FORM STRENGTH: 100 MG ON DAY 1 ONCE DAILY WITH A MEAL AND WATER AT THE SAME TIME EACH DAY
     Route: 048
     Dates: start: 20230621, end: 20230621
  2. VENETOCLAX [Suspect]
     Active Substance: VENETOCLAX
     Indication: Acute myeloid leukaemia
     Dosage: FORM STRENGTH: 200 MG ON DAY 2 ONCE DAILY WITH A MEAL AND WATER AT THE SAME TIME EACH DAY
     Route: 048
     Dates: start: 20230622, end: 20230622
  3. VENETOCLAX [Suspect]
     Active Substance: VENETOCLAX
     Indication: Acute myeloid leukaemia
     Dosage: FORM STRENGTH: 100 MG. 400 MG ON DAY 3 AND ONGOING BY MOUTH ONCE DAILY WITH A MEAL AND WATER AT T...
     Route: 048
     Dates: start: 20230623, end: 20230623
  4. CIPRO [Concomitant]
     Active Substance: CIPROFLOXACIN HYDROCHLORIDE
     Indication: Product used for unknown indication
     Dosage: FORM STRENGTH: 500 MG, 60 TABLETS
     Route: 048
     Dates: start: 20230621, end: 20231019

REACTIONS (1)
  - Death [Fatal]

NARRATIVE: CASE EVENT DATE: 20241108
